FAERS Safety Report 5531338-2 (Version None)
Quarter: 2007Q4

REPORT INFORMATION
  Report Type: 
  Country: None (occurrence: None)
  Receive Date: 20071128
  Receipt Date: 20071115
  Transmission Date: 20080405
  Serious: Yes (Hospitalization)
  Sender: FDA-Public Use
  Company Number: US021745

PATIENT
  Age: 14 Year
  Sex: Male

DRUGS (2)
  1. VIGIL [Suspect]
     Indication: NARCOLEPSY
     Dosage: 200 MG ORAL
     Route: 048
     Dates: start: 20040301, end: 20040701
  2. ANAFRANIL [Concomitant]

REACTIONS (2)
  - CYCLOTHYMIC DISORDER [None]
  - MANIA [None]
